FAERS Safety Report 4638738-3 (Version None)
Quarter: 2005Q2

REPORT INFORMATION
  Report Type: 
  Country: None (occurrence: None)
  Receive Date: 20050418
  Receipt Date: 20050418
  Transmission Date: 20051028
  Serious: No
  Sender: FDA-Public Use
  Company Number: None

PATIENT
  Sex: Male
  Weight: 82.8 kg

DRUGS (8)
  1. ALLOPURINOL [Suspect]
     Indication: ACUTE LYMPHOCYTIC LEUKAEMIA
     Dosage: 300 MG PO QD ON DAYS 1-4
     Route: 048
     Dates: start: 20050211
  2. CYCLOPHOSPHAMIDE [Suspect]
     Dosage: 1200 MG/M2 IV OVER 15-30 MIN ON DAY 1 SEE IMAGE
     Route: 042
  3. DAUNORUBICIN HCL [Suspect]
     Dosage: 80 MG/M2/DAY X 3 DAYS, 1, 2, 3
  4. VINCRISTINE [Suspect]
     Dosage: 2 MG IVP ON DAYS 1, 8, 15, 22
     Route: 042
  5. DEXAMETHASONE [Suspect]
     Dosage: 5 MG/M2 PO BID ON DAYS 1-7 AND 15-21
     Route: 048
  6. ELSPAR [Suspect]
     Dosage: 6000 U/M2 SC/IM ON DAYS 5, 8, 11, 15, 18, 22
     Route: 058
  7. G-CSF [Suspect]
     Dosage: 5 MCG/KG/DAY SC STARTING DAY 4 X 7 DAYS AND CONTINUING UNTIL ANC IS } 5000 MCL PRN
     Route: 058
  8. METHOTREXATE [Suspect]
     Dosage: 15 MG + 50 MG HYDROCORTISONE IT ON DAY 1
     Route: 037

REACTIONS (3)
  - ALANINE AMINOTRANSFERASE INCREASED [None]
  - BLOOD ALKALINE PHOSPHATASE INCREASED [None]
  - BLOOD BILIRUBIN INCREASED [None]
